FAERS Safety Report 10286241 (Version 1)
Quarter: 2014Q3

REPORT INFORMATION
  Report Type: Spontaneous
  Country: US (occurrence: US)
  Receive Date: 20140709
  Receipt Date: 20140709
  Transmission Date: 20150326
  Serious: No
  Sender: FDA-Public Use
  Company Number: US-009507513-1406USA014098

PATIENT
  Age: 66 Year
  Sex: Male

DRUGS (2)
  1. SIMVASTATIN TABLETS, USP [Suspect]
     Active Substance: SIMVASTATIN
     Indication: BLOOD CHOLESTEROL INCREASED
     Dosage: 80 MG, QD
     Route: 048
     Dates: start: 20140514, end: 20140622
  2. SIMVASTATIN TABLETS, USP [Suspect]
     Active Substance: SIMVASTATIN
     Dosage: 40 MG, QD
     Route: 048

REACTIONS (7)
  - Dyspnoea [Unknown]
  - Pain in extremity [Unknown]
  - Chest discomfort [Unknown]
  - Muscle spasms [Unknown]
  - Incorrect dose administered [Unknown]
  - Pain in jaw [Unknown]
  - Muscular weakness [Unknown]

NARRATIVE: CASE EVENT DATE: 2014
